FAERS Safety Report 14316660 (Version 2)
Quarter: 2018Q1

REPORT INFORMATION
  Report Type: Report from Study
  Country: CH (occurrence: CH)
  Receive Date: 20171222
  Receipt Date: 20180104
  Transmission Date: 20180509
  Serious: Yes (Hospitalization)
  Sender: FDA-Public Use
  Company Number: CH-ROCHE-2040351

PATIENT
  Age: 66 Year
  Sex: Female
  Weight: 61 kg

DRUGS (5)
  1. BEVACIZUMAB. [Suspect]
     Active Substance: BEVACIZUMAB
     Indication: OVARIAN CANCER
     Dosage: DATE OF MOST RECENT DOSE OF BEVACIZUMAB (910 MG) WAS RECEIVED ON 30/NOV/2017
     Route: 042
     Dates: start: 20171130
  2. NACL .9% [Concomitant]
     Indication: HYPOTENSION
     Route: 042
     Dates: start: 20171210, end: 20171214
  3. ATEZOLIZUMAB. [Suspect]
     Active Substance: ATEZOLIZUMAB
     Indication: OVARIAN CANCER
     Dosage: DATE OF MOST RECENT DOSE OF ATEZOLIZUMAB (1200 MG) WAS RECEIVED ON 30/NOV/2017
     Route: 042
     Dates: start: 20171130
  4. BLINDED ASPIRIN [Suspect]
     Active Substance: ASPIRIN
     Indication: OVARIAN CANCER
     Dosage: DATE OF MOST RECENT DOSE OF BLINDED ASPIRIN WAS RECEIVED ON 09/DEC/2017, AS THE DOSE ON 10/DEC/2017
     Route: 048
     Dates: start: 20171130
  5. NACL .9% [Concomitant]
     Indication: INFLUENZA LIKE ILLNESS

REACTIONS (1)
  - Influenza like illness [Recovered/Resolved with Sequelae]

NARRATIVE: CASE EVENT DATE: 20171210
